FAERS Safety Report 7130639-4 (Version None)
Quarter: 2010Q4

REPORT INFORMATION
  Report Type: 
  Country: None (occurrence: None)
  Receive Date: 20101111
  Receipt Date: 20100923
  Transmission Date: 20110411
  Serious: No
  Sender: FDA-Public Use
  Company Number: 2010-12745

PATIENT
  Age: 67 Year
  Sex: Male
  Weight: 104.3 kg

DRUGS (1)
  1. RAPAFLO [Suspect]
     Indication: BENIGN PROSTATIC HYPERPLASIA
     Dosage: 8 MG, DAILY, ORAL
     Route: 048
     Dates: start: 20100916, end: 20100921

REACTIONS (4)
  - DYSPNOEA [None]
  - LIP SWELLING [None]
  - SWELLING FACE [None]
  - URTICARIA [None]
